FAERS Safety Report 9540192 (Version 1)
Quarter: 2013Q3

REPORT INFORMATION
  Report Type: Spontaneous
  Country: US (occurrence: US)
  Receive Date: 20130920
  Receipt Date: 20130920
  Transmission Date: 20140515
  Serious: Yes (Hospitalization)
  Sender: FDA-Public Use
  Company Number: US-BRISTOL-MYERS SQUIBB COMPANY-19367887

PATIENT
  Age: 76 Year
  Sex: Female
  Weight: 68.03 kg

DRUGS (2)
  1. ELIQUIS [Suspect]
     Dates: start: 20130809
  2. ASPIRIN [Concomitant]

REACTIONS (2)
  - Cardiac pacemaker insertion [Unknown]
  - Post procedural haematoma [Unknown]
